FAERS Safety Report 6238841-0 (Version None)
Quarter: 2009Q2

REPORT INFORMATION
  Report Type: 
  Country: None (occurrence: None)
  Receive Date: 20090622
  Receipt Date: 20090508
  Transmission Date: 20091009
  Serious: Yes (Life-Threatening, Other)
  Sender: FDA-Public Use
  Company Number: US-JNJFOC-20090502574

PATIENT
  Sex: Female
  Weight: 92 kg

DRUGS (9)
  1. CONCERTA [Suspect]
     Indication: ATTENTION DEFICIT/HYPERACTIVITY DISORDER
     Route: 048
  2. UNKNOWN MEDICATION [Suspect]
     Indication: OBESITY
     Route: 048
  3. MULTI-VITAMINS [Concomitant]
     Route: 065
  4. LOVASTATIN [Concomitant]
     Route: 065
  5. ALEVE [Concomitant]
     Route: 065
  6. WELLBUTRIN XL [Concomitant]
     Route: 065
  7. FLAXSEED OIL [Concomitant]
     Route: 065
  8. GLUCOSAMINE [Concomitant]
     Route: 065
  9. GUAIFENESIN [Concomitant]
     Route: 065

REACTIONS (3)
  - ATRIAL FIBRILLATION [None]
  - MYOCARDIAL INFARCTION [None]
  - SINUS TACHYCARDIA [None]
